FAERS Safety Report 24369837 (Version 1)
Quarter: 2024Q3

REPORT INFORMATION
  Report Type: Spontaneous
  Country: US (occurrence: US)
  Receive Date: 20240927
  Receipt Date: 20240927
  Transmission Date: 20241017
  Serious: No
  Sender: QILU PHARMACEUTICAL
  Company Number: US-QILU PHARMACEUTICAL (HAINAN) CO., LTD.-QLH-000163-2023

PATIENT
  Age: 61 Year
  Sex: Female

DRUGS (3)
  1. FOSAPREPITANT [Suspect]
     Active Substance: FOSAPREPITANT
     Indication: Chemotherapy side effect prophylaxis
     Dosage: 150 MG IN SODIUM CHLORIDE 0.9% 250 ML, ONCE
     Route: 042
     Dates: start: 20230913, end: 20230913
  2. HYDROMORPHONE [Concomitant]
     Active Substance: HYDROMORPHONE
     Indication: Product used for unknown indication
     Dosage: UNK
     Route: 065
  3. AMOXICILLIN [Concomitant]
     Active Substance: AMOXICILLIN
     Indication: Product used for unknown indication
     Dosage: UNK
     Route: 065

REACTIONS (2)
  - Chest discomfort [Recovered/Resolved]
  - Erythema [Recovered/Resolved]

NARRATIVE: CASE EVENT DATE: 20230913
